FAERS Safety Report 9695898 (Version 1)
Quarter: 2013Q4

REPORT INFORMATION
  Report Type: Spontaneous
  Country: US (occurrence: None)
  Receive Date: 20131115
  Receipt Date: 20131115
  Transmission Date: 20140711
  Serious: Yes (Other)
  Sender: FDA-Public Use
  Company Number: ADR-2013-02078

PATIENT
  Sex: Male

DRUGS (1)
  1. LIORESAL [Suspect]
     Indication: MUSCLE SPASTICITY

REACTIONS (6)
  - Pyrexia [None]
  - Muscle spasticity [None]
  - Hyperaesthesia [None]
  - Pruritus [None]
  - Skin burning sensation [None]
  - Medical device complication [None]
